FAERS Safety Report 7271044-X (Version None)
Quarter: 2011Q1

REPORT INFORMATION
  Report Type: 
  Country: None (occurrence: None)
  Receive Date: 20110202
  Receipt Date: 20091013
  Transmission Date: 20110831
  Serious: Yes (Other)
  Sender: FDA-Public Use
  Company Number: US-AMGEN-USASP2009000251

PATIENT
  Sex: Female

DRUGS (3)
  1. HYDROCHLOROTHIAZIDE [Concomitant]
     Dosage: 25 MG, QD
     Route: 048
  2. ENBREL [Suspect]
     Indication: OFF LABEL USE
     Dosage: 50 MG, QWK
     Route: 058
     Dates: start: 19990101, end: 20070101
  3. TRAMADOL HCL [Concomitant]
     Dosage: 50 MG, PRN
     Route: 048

REACTIONS (1)
  - PREGNANCY [None]
